FAERS Safety Report 6342211-4 (Version None)
Quarter: 2009Q3

REPORT INFORMATION
  Report Type: 
  Country: None (occurrence: None)
  Receive Date: 20090903
  Receipt Date: 20090903
  Transmission Date: 20100115
  Serious: Yes (Other)
  Sender: FDA-Public Use
  Company Number: None

PATIENT
  Age: 28 Year
  Sex: Female
  Weight: 102.0593 kg

DRUGS (1)
  1. CYMBALTA [Suspect]
     Indication: POST-TRAUMATIC STRESS DISORDER
     Dosage: 30 MG 1 PO
     Route: 048

REACTIONS (16)
  - AFFECTIVE DISORDER [None]
  - ANXIETY [None]
  - BACK PAIN [None]
  - BLEPHAROSPASM [None]
  - CRYING [None]
  - DISORIENTATION [None]
  - DRUG WITHDRAWAL SYNDROME [None]
  - EMOTIONAL DISORDER [None]
  - MIGRAINE [None]
  - MOTION SICKNESS [None]
  - NAUSEA [None]
  - PARAESTHESIA [None]
  - PRURITUS [None]
  - SELF-INJURIOUS IDEATION [None]
  - SLEEP DISORDER [None]
  - VOMITING [None]
